FAERS Safety Report 4920497-8 (Version None)
Quarter: 2006Q1

REPORT INFORMATION
  Report Type: 
  Country: None (occurrence: None)
  Receive Date: 20060223
  Receipt Date: 20051230
  Transmission Date: 20060701
  Serious: Yes (Hospitalization, Other)
  Sender: FDA-Public Use
  Company Number: US-MERCK-0601USA00287

PATIENT
  Age: 75 Year
  Sex: Male
  Weight: 97 kg

DRUGS (3)
  1. VIOXX [Suspect]
     Indication: ARTHRITIS
     Route: 048
     Dates: start: 20020801
  2. VIOXX [Suspect]
     Route: 048
     Dates: end: 20031101
  3. ASPIRIN [Concomitant]
     Route: 065

REACTIONS (8)
  - AMNESIA [None]
  - ARTHROPATHY [None]
  - CATARACT [None]
  - CEREBROVASCULAR ACCIDENT [None]
  - EYE DISORDER [None]
  - OCULAR VASCULAR DISORDER [None]
  - SPEECH DISORDER [None]
  - VISUAL ACUITY REDUCED [None]
